FAERS Safety Report 8473277-3 (Version None)
Quarter: 2012Q2

REPORT INFORMATION
  Report Type: 
  Country: None (occurrence: None)
  Receive Date: 20120627
  Receipt Date: 20120614
  Transmission Date: 20120825
  Serious: Yes (Hospitalization)
  Sender: FDA-Public Use
  Company Number: AU-ALLERGAN-1207833US

PATIENT
  Age: 73 Year
  Sex: Male

DRUGS (3)
  1. BLINDED AVASTIN                            /01555201/ [Suspect]
     Indication: DIABETIC RETINAL OEDEMA
     Dosage: 0.7 MG, SINGLE
     Route: 031
     Dates: start: 20120330, end: 20120330
  2. AVASTIN [Suspect]
     Indication: DIABETIC RETINAL OEDEMA
     Dosage: UNK
     Route: 031
     Dates: start: 20110819, end: 20110819
  3. BLINDED DEX 0.7MG INS (9632X) [Suspect]
     Indication: DIABETIC RETINAL OEDEMA
     Dosage: 0.7 MG, SINGLE
     Route: 031
     Dates: start: 20120330, end: 20120330

REACTIONS (1)
  - CEREBROVASCULAR ACCIDENT [None]
